FAERS Safety Report 21955284 (Version 2)
Quarter: 2023Q2

REPORT INFORMATION
  Report Type: Spontaneous
  Country: US (occurrence: US)
  Receive Date: 20230206
  Receipt Date: 20230405
  Transmission Date: 20230722
  Serious: No
  Sender: FDA-Public Use
  Company Number: US-BRISTOL-MYERS SQUIBB COMPANY-2023-016430

PATIENT
  Age: 76 Year
  Sex: Male

DRUGS (1)
  1. LENALIDOMIDE [Suspect]
     Active Substance: LENALIDOMIDE
     Indication: Plasma cell myeloma
     Dosage: TAKE 1 CAPSULE (25MG) BY MOUTH DAILY ?FOR 14 DAYS, THEN OFF FOR 7 DAYS.?DO NOT START BEFORE JANUARY
     Route: 048
     Dates: start: 20230112

REACTIONS (5)
  - Dizziness [Unknown]
  - Ageusia [Unknown]
  - Off label use [Unknown]
  - Diarrhoea [Unknown]
  - Asthenia [Unknown]
